FAERS Safety Report 4316882-8 (Version None)
Quarter: 2004Q1

REPORT INFORMATION
  Report Type: 
  Country: None (occurrence: None)
  Receive Date: 20040312
  Receipt Date: 20040312
  Transmission Date: 20041129
  Serious: Yes (Death, Hospitalization)
  Sender: FDA-Public Use
  Company Number: None

PATIENT
  Sex: Female

DRUGS (1)
  1. ENBREL [Suspect]

REACTIONS (21)
  - ABDOMINAL PAIN [None]
  - ARTHRALGIA [None]
  - BIOPSY BONE MARROW ABNORMAL [None]
  - CARDIO-RESPIRATORY ARREST [None]
  - CHOLELITHIASIS [None]
  - DYSPNOEA [None]
  - EXSANGUINATION [None]
  - GALLBLADDER DISORDER [None]
  - LEUKOPENIA [None]
  - MYALGIA [None]
  - OVARIAN CYST [None]
  - PANCYTOPENIA [None]
  - PNEUMONIA [None]
  - PRODUCTIVE COUGH [None]
  - PULMONARY EMBOLISM [None]
  - PYREXIA [None]
  - SPLENOMEGALY [None]
  - STAPHYLOCOCCAL INFECTION [None]
  - SUDDEN DEATH [None]
  - SYSTEMIC MYCOSIS [None]
  - UTERINE LEIOMYOMA [None]
